FAERS Safety Report 7125485-1 (Version None)
Quarter: 2010Q4

REPORT INFORMATION
  Report Type: 
  Country: None (occurrence: None)
  Receive Date: 20101129
  Receipt Date: 20101118
  Transmission Date: 20110411
  Serious: Yes (Other)
  Sender: FDA-Public Use
  Company Number: FR-JNJFOC-20101106806

PATIENT
  Age: 46 Year
  Sex: Female

DRUGS (5)
  1. REMICADE [Suspect]
     Indication: CROHN'S DISEASE
     Route: 042
  2. REMICADE [Suspect]
     Route: 042
  3. REMICADE [Suspect]
     Route: 042
  4. CORTICOSTEROIDS [Concomitant]
  5. HUMIRA [Concomitant]
     Indication: CROHN'S DISEASE

REACTIONS (10)
  - ABDOMINAL PAIN UPPER [None]
  - COUGH [None]
  - DIARRHOEA [None]
  - DYSPHONIA [None]
  - DYSPNOEA [None]
  - LARYNGEAL OEDEMA [None]
  - NEPHROLITHIASIS [None]
  - PHARYNGEAL OEDEMA [None]
  - TYPE IV HYPERSENSITIVITY REACTION [None]
  - WHEEZING [None]
